FAERS Safety Report 15559419 (Version 1)
Quarter: 2018Q4

REPORT INFORMATION
  Report Type: Spontaneous
  Country: JP (occurrence: JP)
  Receive Date: 20181029
  Receipt Date: 20181029
  Transmission Date: 20190205
  Serious: Yes (Other)
  Sender: FDA-Public Use
  Company Number: JP-ROCHE-2205494

PATIENT
  Age: 46 Year
  Sex: Male

DRUGS (18)
  1. LUCENTIS [Suspect]
     Active Substance: RANIBIZUMAB
     Route: 031
     Dates: start: 20141029
  2. LUCENTIS [Suspect]
     Active Substance: RANIBIZUMAB
     Route: 031
     Dates: start: 20150520
  3. LUCENTIS [Suspect]
     Active Substance: RANIBIZUMAB
     Dosage: TAE, UNK
     Route: 031
     Dates: start: 20160914
  4. LUCENTIS [Suspect]
     Active Substance: RANIBIZUMAB
     Dosage: TAE, UNK
     Route: 031
  5. LUCENTIS [Suspect]
     Active Substance: RANIBIZUMAB
     Route: 031
     Dates: start: 20150218
  6. LUCENTIS [Suspect]
     Active Substance: RANIBIZUMAB
     Route: 031
     Dates: start: 20150819
  7. LUCENTIS [Suspect]
     Active Substance: RANIBIZUMAB
     Dosage: TAE, UNK
     Route: 031
     Dates: start: 20161116
  8. LUCENTIS [Suspect]
     Active Substance: RANIBIZUMAB
     Dosage: TAE, UNK
     Route: 031
  9. LUCENTIS [Suspect]
     Active Substance: RANIBIZUMAB
     Dosage: TAE, UNK
     Route: 031
  10. LUCENTIS [Suspect]
     Active Substance: RANIBIZUMAB
     Dosage: TAE, UNK
     Route: 031
  11. LUCENTIS [Suspect]
     Active Substance: RANIBIZUMAB
     Route: 031
     Dates: start: 20151216
  12. LUCENTIS [Suspect]
     Active Substance: RANIBIZUMAB
     Route: 031
     Dates: start: 20160413
  13. LUCENTIS [Suspect]
     Active Substance: RANIBIZUMAB
     Dosage: TAE, UNK
     Route: 031
  14. LUCENTIS [Suspect]
     Active Substance: RANIBIZUMAB
     Indication: DIABETIC RETINAL OEDEMA
     Route: 031
     Dates: start: 20140514
  15. LUCENTIS [Suspect]
     Active Substance: RANIBIZUMAB
     Route: 031
     Dates: start: 20140730
  16. LUCENTIS [Suspect]
     Active Substance: RANIBIZUMAB
     Dosage: TAE, UNK
     Route: 031
     Dates: start: 20170208
  17. LUCENTIS [Suspect]
     Active Substance: RANIBIZUMAB
     Dosage: TAE
     Route: 031
     Dates: start: 20160622
  18. LUCENTIS [Suspect]
     Active Substance: RANIBIZUMAB
     Dosage: TAE, UNK
     Route: 031

REACTIONS (2)
  - Diabetic retinal oedema [Unknown]
  - Visual acuity reduced [Recovering/Resolving]
